FAERS Safety Report 16207074 (Version 2)
Quarter: 2019Q2

REPORT INFORMATION
  Report Type: Spontaneous
  Country: CH (occurrence: CH)
  Receive Date: 20190417
  Receipt Date: 20190621
  Transmission Date: 20190711
  Serious: Yes (Life-Threatening, Other)
  Sender: FDA-Public Use
  Company Number: CH-ROCHE-2179151

PATIENT
  Age: 65 Year
  Sex: Male
  Weight: 84 kg

DRUGS (4)
  1. MABTHERA [Suspect]
     Active Substance: RITUXIMAB
     Indication: WALDENSTROM^S MACROGLOBULINAEMIA
     Route: 042
     Dates: start: 20090113, end: 20090120
  2. CYCLOPHOSPHAMIDE. [Concomitant]
     Active Substance: CYCLOPHOSPHAMIDE
     Route: 065
     Dates: start: 200903, end: 200909
  3. MABTHERA [Suspect]
     Active Substance: RITUXIMAB
     Route: 042
     Dates: start: 20090305, end: 20090313
  4. FLUDARABINE [Concomitant]
     Active Substance: FLUDARABINE PHOSPHATE
     Route: 065
     Dates: start: 200903, end: 200909

REACTIONS (6)
  - Deep vein thrombosis [Unknown]
  - Off label use [Unknown]
  - Herpes zoster [Unknown]
  - Intentional product use issue [Unknown]
  - Anaphylactic reaction [Recovered/Resolved]
  - Lymphoma transformation [Unknown]

NARRATIVE: CASE EVENT DATE: 200907
